FAERS Safety Report 20672425 (Version 1)
Quarter: 2022Q2

REPORT INFORMATION
  Report Type: Spontaneous
  Country: GB (occurrence: GB)
  Receive Date: 20220405
  Receipt Date: 20220405
  Transmission Date: 20220721
  Serious: Yes (Other)
  Sender: FDA-Public Use
  Company Number: GB-ALKEM LABORATORIES LIMITED-GB-ALKEM-2022-02595

PATIENT
  Age: 60 Year
  Sex: Female

DRUGS (3)
  1. LAMOTRIGINE [Suspect]
     Active Substance: LAMOTRIGINE
     Indication: Temporal lobe epilepsy
     Dosage: 125 MILLIGRAM, BID
     Route: 065
  2. LEVETIRACETAM [Suspect]
     Active Substance: LEVETIRACETAM
     Indication: Temporal lobe epilepsy
     Dosage: 1.5 GRAM, BID
     Route: 065
  3. AJMALINE [Suspect]
     Active Substance: AJMALINE
     Indication: Arrhythmia prophylaxis
     Dosage: 1 MILLIGRAM/KILOGRAM (INFUSION)
     Route: 065

REACTIONS (1)
  - Arrhythmia [Recovered/Resolved]
